FAERS Safety Report 9472350 (Version 2)
Quarter: 2013Q3

REPORT INFORMATION
  Report Type: Report from Study
  Country: CA (occurrence: CA)
  Receive Date: 20130823
  Receipt Date: 20130823
  Transmission Date: 20140515
  Serious: Yes (Hospitalization, Other)
  Sender: FDA-Public Use
  Company Number: CA-JNJFOC-20130522104

PATIENT
  Age: 86 Year
  Sex: Female
  Weight: 51 kg

DRUGS (11)
  1. REMICADE [Suspect]
     Indication: RHEUMATOID ARTHRITIS
     Route: 042
     Dates: start: 20130502
  2. REMICADE [Suspect]
     Indication: RHEUMATOID ARTHRITIS
     Route: 042
     Dates: start: 20061020
  3. DIDROCAL [Concomitant]
     Route: 065
  4. NITRO-DUR [Concomitant]
     Route: 065
  5. OMEPRAZOLE [Concomitant]
     Route: 065
  6. LIPITOR [Concomitant]
     Route: 065
  7. COVERSYL [Concomitant]
     Route: 065
  8. NOVO-METOPROLOL [Concomitant]
     Route: 065
  9. RATIO-METFORMIN [Concomitant]
     Route: 065
  10. NOVO-GABAPENTIN [Concomitant]
     Route: 065
  11. METHOTREXATE [Concomitant]
     Route: 065

REACTIONS (6)
  - Fall [Recovered/Resolved]
  - Head injury [Recovered/Resolved]
  - Pneumonia [Recovered/Resolved]
  - Intestinal obstruction [Recovered/Resolved]
  - Wheezing [Unknown]
  - Oedema [Unknown]
